FAERS Safety Report 25347307 (Version 1)
Quarter: 2025Q2

REPORT INFORMATION
  Report Type: Spontaneous
  Country: CN (occurrence: CN)
  Receive Date: 20250522
  Receipt Date: 20250522
  Transmission Date: 20250716
  Serious: Yes (Hospitalization, Other)
  Sender: ELI LILLY AND COMPANY
  Company Number: CN-ELI_LILLY_AND_COMPANY-CN202505012677

PATIENT
  Age: 70 Year
  Sex: Male
  Weight: 48 kg

DRUGS (2)
  1. HUMALOG MIX75/25 [Suspect]
     Active Substance: INSULIN LISPRO
     Indication: Diabetes mellitus
     Dosage: 23 U, DAILY (IN MORNING)
     Route: 058
     Dates: start: 20230201, end: 20250512
  2. HUMALOG MIX75/25 [Suspect]
     Active Substance: INSULIN LISPRO
     Dosage: 25 U, DAILY (IN EVENING)
     Route: 058
     Dates: start: 20230201, end: 20250512

REACTIONS (4)
  - Hypoglycaemic coma [Recovering/Resolving]
  - Hypotension [Unknown]
  - Dizziness [Unknown]
  - Asthenia [Unknown]

NARRATIVE: CASE EVENT DATE: 20250512
